FAERS Safety Report 15386301 (Version 2)
Quarter: 2018Q4

REPORT INFORMATION
  Report Type: Spontaneous
  Country: US (occurrence: US)
  Receive Date: 20180914
  Receipt Date: 20181025
  Transmission Date: 20190204
  Serious: No
  Sender: FDA-Public Use
  Company Number: US-ASTRAZENECA-2018SF05586

PATIENT
  Age: 71 Year
  Sex: Male
  Weight: 97.5 kg

DRUGS (8)
  1. MAGNESIUM [Concomitant]
     Active Substance: MAGNESIUM
     Indication: MUSCLE SPASMS
     Route: 048
     Dates: start: 2016
  2. OMEGA 3 [Concomitant]
     Active Substance: OMEGA-3 FATTY ACIDS
     Route: 048
  3. LISINOPRIL. [Suspect]
     Active Substance: LISINOPRIL
     Indication: HEART RATE INCREASED
     Route: 048
     Dates: start: 201205, end: 2017
  4. BABY ASPIRING [Concomitant]
     Indication: MYOCARDIAL INFARCTION
     Route: 048
     Dates: start: 201205
  5. BEVESPI AEROSPHERE [Suspect]
     Active Substance: FORMOTEROL FUMARATE\GLYCOPYRROLATE
     Indication: BRONCHITIS
     Dosage: 9 MCG/ 4.8MCG, 2 INHALATIONS TWICE A DAY
     Route: 055
     Dates: start: 2017
  6. MAGNESIUM [Concomitant]
     Active Substance: MAGNESIUM
     Indication: HYPERHIDROSIS
     Route: 048
     Dates: start: 2016
  7. PINADOL [Concomitant]
     Indication: HEART RATE INCREASED
     Route: 048
     Dates: start: 2017
  8. MUKTIVITAMIN [Concomitant]
     Indication: NUTRITIONAL SUPPLEMENTATION
     Dosage: 1, EVERY DAY
     Route: 048

REACTIONS (12)
  - Liver disorder [Unknown]
  - Hyperhidrosis [Unknown]
  - Muscle spasms [Unknown]
  - Off label use [Unknown]
  - Intentional device misuse [Unknown]
  - Device malfunction [Unknown]
  - Product use in unapproved indication [Unknown]
  - Device use issue [Unknown]
  - Product dose omission [Unknown]
  - Bronchitis [Unknown]
  - Weight decreased [Unknown]
  - Laryngitis [Unknown]

NARRATIVE: CASE EVENT DATE: 2016
